FAERS Safety Report 6526918-1 (Version None)
Quarter: 2010Q1

REPORT INFORMATION
  Report Type: 
  Country: None (occurrence: None)
  Receive Date: 20100104
  Receipt Date: 20100104
  Transmission Date: 20100710
  Serious: Yes (Other)
  Sender: FDA-Public Use
  Company Number: None

PATIENT
  Age: 54 Year
  Sex: Female
  Weight: 58.9676 kg

DRUGS (3)
  1. LEVOTHYROXINE SODIUM [Suspect]
     Indication: HYPERTHYROIDISM
     Dosage: 1 TABLET DAY
     Dates: start: 20091217, end: 20091230
  2. LEVOTHYROXINE SODIUM [Suspect]
     Dosage: 1 1/2 TAB + 2 TAB ALTERNATE DAY
     Dates: start: 20090101, end: 20090103
  3. THYROID TAB [Suspect]

REACTIONS (8)
  - ANXIETY [None]
  - DYSPNOEA [None]
  - EPISTAXIS [None]
  - HEADACHE [None]
  - NASAL DRYNESS [None]
  - PRODUCT SUBSTITUTION ISSUE [None]
  - REACTION TO DRUG EXCIPIENTS [None]
  - UPPER RESPIRATORY TRACT INFECTION [None]
